FAERS Safety Report 10426303 (Version 1)
Quarter: 2014Q3

REPORT INFORMATION
  Report Type: Spontaneous
  Country: US (occurrence: None)
  Receive Date: 20140902
  Receipt Date: 20140902
  Transmission Date: 20150326
  Serious: Yes (Disabling)
  Sender: FDA-Public Use
  Company Number: None

PATIENT
  Age: 62 Year
  Sex: Female
  Weight: 81.65 kg

DRUGS (10)
  1. AVAPRO [Concomitant]
     Active Substance: IRBESARTAN
  2. VITAMIN B12 [Concomitant]
     Active Substance: CYANOCOBALAMIN
  3. ATIVAN [Concomitant]
     Active Substance: LORAZEPAM
  4. FISH OIL [Concomitant]
     Active Substance: FISH OIL
  5. SEROQUEL [Concomitant]
     Active Substance: QUETIAPINE FUMARATE
  6. WARFARIN [Concomitant]
     Active Substance: WARFARIN
  7. VITAMIN C [Concomitant]
     Active Substance: ASCORBIC ACID
  8. MELATONIN [Concomitant]
     Active Substance: MELATONIN
  9. PREMARIN [Suspect]
     Active Substance: ESTROGENS, CONJUGATED
     Indication: VULVOVAGINAL DRYNESS
     Dosage: 0.625?0.625 GM ONCE OR TWICE A WEEK ?ONCE OR TWICE A WEEK?VAGINAL ??THERAPY?7/17/2014 ?NEVER TOOK IT AGAIN
     Route: 067
     Dates: start: 20140717
  10. VALERIAN ROOT [Concomitant]
     Active Substance: VALERIAN

REACTIONS (3)
  - Depression suicidal [None]
  - Depression [None]
  - Crying [None]

NARRATIVE: CASE EVENT DATE: 20140718
